FAERS Safety Report 9433765 (Version 2)
Quarter: 2013Q4

REPORT INFORMATION
  Report Type: Spontaneous
  Country: US (occurrence: US)
  Receive Date: 20130731
  Receipt Date: 20131014
  Transmission Date: 20140711
  Serious: Yes (Death)
  Sender: FDA-Public Use
  Company Number: US-SANOFI-AVENTIS-2013SA076688

PATIENT
  Age: 66 Year
  Sex: Female

DRUGS (1)
  1. PLAVIX [Suspect]
     Route: 065

REACTIONS (1)
  - Cardiac disorder [Fatal]
